FAERS Safety Report 6649719-2 (Version None)
Quarter: 2010Q1

REPORT INFORMATION
  Report Type: 
  Country: None (occurrence: None)
  Receive Date: 20100324
  Receipt Date: 20100324
  Transmission Date: 20100710
  Serious: Yes (Disabling)
  Sender: FDA-Public Use
  Company Number: None

PATIENT
  Age: 68 Year
  Sex: Female
  Weight: 68.9467 kg

DRUGS (1)
  1. METOCLOPRAMIDE HYDROCHLORIDE [Suspect]
     Indication: GASTRIC DISORDER
     Dosage: 3 DAILY BEFORE EA MEAL
     Dates: start: 20090603, end: 20091029

REACTIONS (6)
  - BLADDER SPASM [None]
  - GASTROINTESTINAL PAIN [None]
  - HYPERHIDROSIS [None]
  - JOINT STIFFNESS [None]
  - TREMOR [None]
  - VAGINISMUS [None]
